FAERS Safety Report 8595758 (Version 3)
Quarter: 2013Q4

REPORT INFORMATION
  Report Type: Spontaneous
  Country: US (occurrence: US)
  Receive Date: 20120605
  Receipt Date: 20131129
  Transmission Date: 20140711
  Serious: Yes (Other)
  Sender: FDA-Public Use
  Company Number: US-ASTRAZENECA-2012SE34979

PATIENT
  Age: 53 Year
  Sex: Female

DRUGS (13)
  1. NEXIUM [Suspect]
     Indication: GASTROOESOPHAGEAL REFLUX DISEASE
     Route: 048
     Dates: start: 20070605
  2. NEXIUM [Suspect]
     Indication: GASTROOESOPHAGEAL REFLUX DISEASE
     Dosage: TWO TIMES A DAY
     Route: 048
     Dates: start: 20090126
  3. DIFLUCAN [Concomitant]
     Dosage: AS NEEDED
     Dates: start: 20070921
  4. AVALIDE [Concomitant]
     Dosage: 300-12.5 MG
     Dates: start: 20070605
  5. AVALIDE [Concomitant]
     Dates: start: 20090126
  6. PREMARIN [Concomitant]
     Dates: start: 20090126
  7. REMERON [Concomitant]
     Dates: start: 20090126
  8. LOTENSIN [Concomitant]
     Dosage: 12/12.5 MG ONE HALF Q DAY
     Dates: start: 20090126
  9. CYMBALTA [Concomitant]
     Dates: start: 20090126
  10. ATENOLOL [Concomitant]
     Dates: start: 20090126
  11. LYRICA [Concomitant]
     Dates: start: 20090126
  12. AMOXICILLIN [Concomitant]
     Dates: start: 20070629
  13. ZELNORM [Concomitant]
     Dates: start: 20061108

REACTIONS (7)
  - Bone neoplasm [Unknown]
  - Osteoporosis [Unknown]
  - Multiple fractures [Unknown]
  - Calcium deficiency [Unknown]
  - Diabetes mellitus [Unknown]
  - Vitamin D deficiency [Unknown]
  - Bone density decreased [Unknown]
